FAERS Safety Report 9968474 (Version 1)
Quarter: 2014Q1

REPORT INFORMATION
  Report Type: Report from Study
  Country: US (occurrence: US)
  Receive Date: 20140306
  Receipt Date: 20140306
  Transmission Date: 20141002
  Serious: No
  Sender: FDA-Public Use
  Company Number: US-ABBVIE-13P-163-1140492-00

PATIENT
  Age: 49 Year
  Sex: Female

DRUGS (8)
  1. HUMIRA [Suspect]
     Indication: CROHN^S DISEASE
     Dates: start: 20130816, end: 20130816
  2. HUMIRA [Suspect]
  3. HYDROCODONE W/ACETAMINOPHEN [Concomitant]
     Indication: PAIN
     Dosage: 10/325 EVERY 8 HOURS OR AS NEEDED
  4. CITALOPRAM [Concomitant]
     Indication: DEPRESSION
  5. AMITRIPTYLINE [Concomitant]
     Indication: DEPRESSION
  6. OMEPRAZOLE [Concomitant]
     Indication: GASTROOESOPHAGEAL REFLUX DISEASE
  7. OMEPRAZOLE [Concomitant]
     Indication: GASTROOESOPHAGEAL REFLUX DISEASE
  8. BENTYL [Concomitant]
     Indication: GASTROINTESTINAL PAIN

REACTIONS (2)
  - Psychiatric symptom [Recovered/Resolved]
  - Fear [Recovered/Resolved]
